FAERS Safety Report 5698902-1 (Version None)
Quarter: 2008Q2

REPORT INFORMATION
  Report Type: 
  Country: None (occurrence: None)
  Receive Date: 20080408
  Receipt Date: 20060720
  Transmission Date: 20081010
  Serious: No
  Sender: FDA-Public Use
  Company Number: US-BAYER-US-2006-019849

PATIENT
  Age: 47 Year
  Sex: Male
  Weight: 87 kg

DRUGS (2)
  1. ULTRAVIST 370 [Suspect]
     Indication: COMPUTERISED TOMOGRAM ABDOMEN
     Dosage: UNIT DOSE: 150 ML
     Route: 042
     Dates: start: 20060720, end: 20060720
  2. CONTRAST MEDIA [Concomitant]
     Route: 048
     Dates: start: 20060720, end: 20060720

REACTIONS (3)
  - EYE PRURITUS [None]
  - EYE SWELLING [None]
  - SNEEZING [None]
